FAERS Safety Report 8990933 (Version 1)
Quarter: 2012Q4

REPORT INFORMATION
  Report Type: Spontaneous
  Country: US (occurrence: None)
  Receive Date: 20121220
  Receipt Date: 20121220
  Transmission Date: 20130627
  Serious: Yes (Other)
  Sender: FDA-Public Use
  Company Number: GB-1195660

PATIENT
  Age: 25 Year
  Sex: Female
  Weight: 77 kg

DRUGS (8)
  1. CILOXAN [Suspect]
  2. AMOXICILLIN [Concomitant]
  3. CHLORPHENAMINE [Concomitant]
  4. CLENIL MODULITE [Concomitant]
  5. NITROFURANTOIN [Concomitant]
  6. PREDNISOLONE [Concomitant]
  7. SALBUTAMOL [Concomitant]
  8. TRIMETHOPRIM [Concomitant]

REACTIONS (3)
  - Palpitations [None]
  - Paraesthesia [None]
  - Chromatopsia [None]
